FAERS Safety Report 6576692-8 (Version None)
Quarter: 2010Q1

REPORT INFORMATION
  Report Type: 
  Country: None (occurrence: None)
  Receive Date: 20100210
  Receipt Date: 20100203
  Transmission Date: 20100710
  Serious: Yes (Hospitalization)
  Sender: FDA-Public Use
  Company Number: GB-ROCHE-632058

PATIENT
  Sex: Male
  Weight: 86 kg

DRUGS (11)
  1. CAPECITABINE [Suspect]
     Indication: COLON CANCER
     Dosage: MOST RECENT DOSE:20 JAN 2009, CURRENT CYCLE:8, 20% DOSE REDUCTION DUE TO DIARRHOEA
     Route: 048
     Dates: start: 20080811
  2. BEVACIZUMAB [Suspect]
     Indication: COLON CANCER
     Dosage: MOST RECENT DOSE: 23 APR 2009, INFUSION, CYCLE 13, 10%DOSE REDUCTIONAT CYCLE 10 DUE TO WEIGHT LOSS
     Route: 042
     Dates: start: 20080811
  3. CITALOPRAM [Concomitant]
     Indication: DEPRESSION
     Route: 048
  4. SIMVASTATIN [Concomitant]
     Indication: HYPERCHOLESTEROLAEMIA
     Route: 048
  5. VESICARE [Concomitant]
     Route: 048
  6. FINASTERIDE [Concomitant]
     Indication: BENIGN PROSTATIC HYPERPLASIA
     Route: 048
  7. DICLOFENAC SR [Concomitant]
     Indication: ANALGESIC THERAPY
     Route: 048
  8. ADCAL D3 [Concomitant]
     Indication: VITAMIN D DEFICIENCY
     Route: 048
  9. CIPROFLOXACIN [Concomitant]
     Indication: URINARY TRACT INFECTION
     Route: 048
     Dates: start: 20090507
  10. CYCLIZINE [Concomitant]
     Indication: ANTIEMETIC SUPPORTIVE CARE
     Route: 048
     Dates: start: 20090508
  11. IMODIUM [Concomitant]
     Indication: DIARRHOEA
     Route: 048

REACTIONS (1)
  - GENERAL PHYSICAL HEALTH DETERIORATION [None]
